FAERS Safety Report 23514441 (Version 1)
Quarter: 2024Q1

REPORT INFORMATION
  Report Type: Spontaneous
  Country: US (occurrence: US)
  Receive Date: 20240212
  Receipt Date: 20240212
  Transmission Date: 20240410
  Serious: Yes (Other)
  Sender: FDA-Public Use
  Company Number: US-PFIZER INC-202400035965

PATIENT
  Age: 55 Year
  Sex: Female
  Weight: 107 kg

DRUGS (6)
  1. NURTEC ODT [Interacting]
     Active Substance: RIMEGEPANT SULFATE
     Indication: Migraine
     Dosage: 75 MG, AS NEEDED
     Dates: start: 20230811
  2. NURTEC ODT [Interacting]
     Active Substance: RIMEGEPANT SULFATE
     Dosage: 75 MG, AS NEEDED
     Dates: start: 20240206
  3. WARFARIN [Interacting]
     Active Substance: WARFARIN
     Indication: Pulmonary embolism
     Dosage: DOSE VARIES 5MG AND 1MG TABLETS, TAKES 7MG TUES/THURS/SAT/SUN, TAKES 8MG MON/WED/FRI
  4. WARFARIN [Interacting]
     Active Substance: WARFARIN
     Indication: Deep vein thrombosis
  5. WARFARIN [Interacting]
     Active Substance: WARFARIN
     Indication: Cerebrovascular accident
  6. WARFARIN [Interacting]
     Active Substance: WARFARIN
     Indication: Atrial fibrillation

REACTIONS (2)
  - Drug interaction [Unknown]
  - International normalised ratio decreased [Unknown]

NARRATIVE: CASE EVENT DATE: 20230801
